FAERS Safety Report 6106274-3 (Version None)
Quarter: 2009Q1

REPORT INFORMATION
  Report Type: 
  Country: None (occurrence: None)
  Receive Date: 20090306
  Receipt Date: 20090225
  Transmission Date: 20090719
  Serious: Yes (Other)
  Sender: FDA-Public Use
  Company Number: PHHY2008BE18632

PATIENT
  Sex: Female

DRUGS (3)
  1. ACLASTA [Suspect]
     Indication: OSTEOPOROSIS
     Dosage: 5 MG AMPOULE
     Dates: start: 20080101
  2. ACLASTA [Suspect]
     Indication: BONE PAIN
  3. ANTIHYPERTENSIVE DRUGS [Concomitant]

REACTIONS (3)
  - BENIGN BONE NEOPLASM [None]
  - BONE PAIN [None]
  - SURGERY [None]
